FAERS Safety Report 4339984-9 (Version None)
Quarter: 2004Q2

REPORT INFORMATION
  Report Type: 
  Country: None (occurrence: None)
  Receive Date: 20040416
  Receipt Date: 20040405
  Transmission Date: 20050107
  Serious: Yes (Other)
  Sender: FDA-Public Use
  Company Number: PHRM2004FR01471

PATIENT
  Age: 44 Year
  Sex: Male

DRUGS (1)
  1. LAMISIL [Suspect]
     Indication: NAIL TINEA
     Route: 048

REACTIONS (2)
  - CUTANEOUS LUPUS ERYTHEMATOSUS [None]
  - RASH [None]
